FAERS Safety Report 24685585 (Version 1)
Quarter: 2024Q4

REPORT INFORMATION
  Report Type: Spontaneous
  Country: US (occurrence: None)
  Receive Date: 20241127
  Receipt Date: 20241127
  Transmission Date: 20250115
  Serious: Yes (Hospitalization)
  Sender: Public
  Company Number: None

PATIENT
  Age: 33 Year
  Sex: Female
  Weight: 56.7 kg

DRUGS (3)
  1. GADOLINIUM [Suspect]
     Active Substance: GADOLINIUM
  2. UNSPECIFIED INGREDIENT [Concomitant]
     Active Substance: UNSPECIFIED INGREDIENT
  3. Women^s multi vitamin [Concomitant]

REACTIONS (6)
  - Drug screen positive [None]
  - Contrast media reaction [None]
  - Vibration syndrome [None]
  - Erythema [None]
  - Mental disorder [None]
  - Malaise [None]

NARRATIVE: CASE EVENT DATE: 20240808
